FAERS Safety Report 18269302 (Version 1)
Quarter: 2020Q3

REPORT INFORMATION
  Report Type: Spontaneous
  Country: DZ (occurrence: DZ)
  Receive Date: 20200915
  Receipt Date: 20200915
  Transmission Date: 20201103
  Serious: Yes (Death, Other)
  Sender: FDA-Public Use
  Company Number: DZ-JAZZ-2020-DZ-003526

PATIENT
  Age: 51 Year
  Sex: Male

DRUGS (1)
  1. KIDROLASE [Suspect]
     Active Substance: ASPARAGINASE
     Indication: ACUTE LYMPHOCYTIC LEUKAEMIA
     Dosage: 10000 IU EACH (4 INJECTIONS)
     Route: 065
     Dates: start: 202002, end: 20200301

REACTIONS (5)
  - Cerebral thrombosis [Unknown]
  - Death [Fatal]
  - Coagulopathy [Unknown]
  - Agitation [Unknown]
  - Liver disorder [Unknown]
